FAERS Safety Report 5573399-0 (Version None)
Quarter: 2007Q4

REPORT INFORMATION
  Report Type: 
  Country: None (occurrence: None)
  Receive Date: 20071226
  Receipt Date: 20071213
  Transmission Date: 20080405
  Serious: Yes (Hospitalization)
  Sender: FDA-Public Use
  Company Number: CA-JNJFOC-20071203549

PATIENT
  Sex: Male

DRUGS (2)
  1. ETRAVIRINE [Suspect]
     Indication: HIV INFECTION
     Dosage: TEMPORARILY STOPPED
     Route: 048
     Dates: start: 20070611, end: 20071206
  2. PREZISTA [Suspect]
     Indication: HIV INFECTION
     Dosage: TEMPORARILY STOPPED
     Route: 048
     Dates: start: 20070611, end: 20071206

REACTIONS (1)
  - PERIOSTITIS [None]
